FAERS Safety Report 20300280 (Version 2)
Quarter: 2022Q1

REPORT INFORMATION
  Report Type: Spontaneous
  Country: CN (occurrence: CN)
  Receive Date: 20220105
  Receipt Date: 20220106
  Transmission Date: 20220423
  Serious: Yes (Life-Threatening)
  Sender: FDA-Public Use
  Company Number: CN-CELGENE-CHN-20220100064

PATIENT
  Sex: Female

DRUGS (8)
  1. AZACITIDINE [Suspect]
     Active Substance: AZACITIDINE
     Indication: Acute myeloid leukaemia
     Dosage: .1 GRAM
     Route: 058
     Dates: start: 20211216, end: 20211222
  2. ETOPOSIDE [Suspect]
     Active Substance: ETOPOSIDE
     Indication: Acute myeloid leukaemia
     Dosage: .1 GRAM
     Route: 041
     Dates: start: 20211216, end: 20211220
  3. CYTARABINE [Suspect]
     Active Substance: CYTARABINE
     Indication: Acute myeloid leukaemia
     Dosage: 150 MILLIGRAM
     Route: 041
     Dates: start: 20211216, end: 20211222
  4. OMACETAXINE MEPESUCCINATE [Suspect]
     Active Substance: OMACETAXINE MEPESUCCINATE
     Indication: Acute myeloid leukaemia
     Dosage: 3 MILLIGRAM
     Route: 041
     Dates: start: 20211216, end: 20211220
  5. SODIUM CHLORIDE [Concomitant]
     Active Substance: SODIUM CHLORIDE
     Indication: Product used for unknown indication
     Dosage: 500 MILLILITER
     Route: 041
     Dates: start: 20211216, end: 20211222
  6. SODIUM CHLORIDE [Concomitant]
     Active Substance: SODIUM CHLORIDE
     Dosage: 500 MILLILITER
     Route: 041
     Dates: start: 20211216, end: 20211220
  7. STERILE WATER [Concomitant]
     Active Substance: WATER
     Indication: Product used for unknown indication
     Dosage: 4 MILLILITER
     Route: 041
     Dates: start: 20211216, end: 20211222
  8. DEXTROSE [Concomitant]
     Active Substance: DEXTROSE
     Indication: Product used for unknown indication
     Dosage: 250 MILLILITER
     Route: 041
     Dates: start: 20211216, end: 20211220

REACTIONS (1)
  - Myelosuppression [Unknown]
